FAERS Safety Report 9486264 (Version 1)
Quarter: 2013Q3

REPORT INFORMATION
  Report Type: Spontaneous
  Country: FR (occurrence: FR)
  Receive Date: 20130829
  Receipt Date: 20130829
  Transmission Date: 20140515
  Serious: Yes (Hospitalization, Other)
  Sender: FDA-Public Use
  Company Number: FR-ASTRAZENECA-2013SE64637

PATIENT
  Age: 14609 Day
  Sex: Female

DRUGS (2)
  1. DIPRIVAN [Suspect]
     Route: 042
     Dates: start: 20130627, end: 20130628
  2. TAMOXIFENE [Concomitant]
     Route: 048
     Dates: start: 2011, end: 2013

REACTIONS (6)
  - Propofol infusion syndrome [Recovered/Resolved]
  - Dyspepsia [Unknown]
  - Cholestasis [Unknown]
  - Inflammation [Recovered/Resolved]
  - Septic shock [Unknown]
  - Thrombocytopenia [Unknown]
